FAERS Safety Report 4580273-5 (Version None)
Quarter: 2005Q1

REPORT INFORMATION
  Report Type: 
  Country: None (occurrence: None)
  Receive Date: 20050214
  Receipt Date: 20050204
  Transmission Date: 20050727
  Serious: Yes (Death)
  Sender: FDA-Public Use
  Company Number: GR-GLAXOSMITHKLINE-B0371163A

PATIENT
  Age: 65 Year
  Sex: Male

DRUGS (4)
  1. AUGMENTIN '125' [Suspect]
     Indication: PHARYNGOLARYNGEAL PAIN
     Dosage: 625MG SINGLE DOSE
     Route: 048
     Dates: start: 20050105, end: 20050105
  2. THIAZIDE [Concomitant]
     Route: 065
  3. CALCIUM ANTAGONIST [Concomitant]
     Route: 065
  4. ACE INHIBITOR [Concomitant]

REACTIONS (4)
  - DYSPNOEA [None]
  - FACE OEDEMA [None]
  - HYPERSENSITIVITY [None]
  - LOSS OF CONSCIOUSNESS [None]
